FAERS Safety Report 4812961-7 (Version None)
Quarter: 2005Q4

REPORT INFORMATION
  Report Type: 
  Country: None (occurrence: None)
  Receive Date: 20051028
  Receipt Date: 20050524
  Transmission Date: 20060501
  Serious: Yes (Life-Threatening, Other)
  Sender: FDA-Public Use
  Company Number: US-GLAXOSMITHKLINE-A0559921A

PATIENT
  Age: 77 Year
  Sex: Female

DRUGS (13)
  1. ADVAIR DISKUS 100/50 [Suspect]
     Indication: LUNG DISORDER
     Dosage: 500MG TWICE PER DAY
     Route: 055
     Dates: start: 20050521, end: 20050521
  2. ZAROXOLYN [Concomitant]
  3. PAXIL [Concomitant]
  4. LASIX [Concomitant]
  5. XANAX [Concomitant]
     Route: 065
  6. CARDIZEM [Concomitant]
  7. LISINOPRIL [Concomitant]
     Route: 065
  8. COUMADIN [Concomitant]
  9. K-DUR 10 [Concomitant]
  10. MAGNESIUM SULFATE [Concomitant]
     Route: 065
  11. MACRODANTIN [Concomitant]
  12. LIPITOR [Concomitant]
  13. BIAXIN [Concomitant]

REACTIONS (1)
  - TREMOR [None]
